FAERS Safety Report 24754032 (Version 1)
Quarter: 2024Q4

REPORT INFORMATION
  Report Type: Spontaneous
  Country: US (occurrence: None)
  Receive Date: 20241218
  Receipt Date: 20241218
  Transmission Date: 20250114
  Serious: Yes (Other)
  Sender: Public
  Company Number: None

PATIENT
  Age: 58 Year
  Sex: Female

DRUGS (1)
  1. LYNPARZA [Suspect]
     Active Substance: OLAPARIB
     Dates: start: 20240214, end: 20241218

REACTIONS (4)
  - Diarrhoea [None]
  - Rash [None]
  - Confusional state [None]
  - Therapy cessation [None]

NARRATIVE: CASE EVENT DATE: 20241218
